FAERS Safety Report 5149758-7 (Version None)
Quarter: 2006Q4

REPORT INFORMATION
  Report Type: 
  Country: None (occurrence: None)
  Receive Date: 20061113
  Receipt Date: 20061109
  Transmission Date: 20070319
  Serious: Yes (Hospitalization)
  Sender: FDA-Public Use
  Company Number: AU-BRISTOL-MYERS SQUIBB COMPANY-13571880

PATIENT
  Age: 59 Year
  Sex: Female

DRUGS (1)
  1. KARVEA TABS 75 MG [Suspect]
     Indication: HYPERTENSION
     Route: 048

REACTIONS (2)
  - ANGIONEUROTIC OEDEMA [None]
  - PRURITUS [None]
